FAERS Safety Report 8641394 (Version 2)
Quarter: 2012Q4

REPORT INFORMATION
  Report Type: 
  Country: CH (occurrence: CH)
  Receive Date: 20120628
  Receipt Date: 20120924
  Transmission Date: 20130627
  Serious: Yes (Life-Threatening, Hospitalization)
  Sender: FDA-Public Use
  Company Number: CH-ROCHE-1082414

PATIENT
  Age: 65 Year
  Sex: Male
  Weight: 78 kg

DRUGS (12)
  1. LUCENTIS [Suspect]
     Indication: AGE-RELATED MACULAR DEGENERATION
     Route: 003
     Dates: start: 20120507
  2. METO ZEROK [Suspect]
     Indication: ESSENTIAL HYPERTENSION
     Dosage: (0.5 x 100 mg)
     Route: 048
  3. INDAPAMIDE/PERINDOPRIL [Suspect]
     Indication: ESSENTIAL HYPERTENSION
     Route: 048
     Dates: end: 2012
  4. ASPIRIN CARDIO [Concomitant]
  5. COVERSUM [Concomitant]
     Indication: HYPERTENSION
  6. PRAVASTATIN [Concomitant]
     Route: 065
  7. METOPROLOL SUCCINATE [Concomitant]
  8. HUMALOG [Concomitant]
  9. LANTUS [Concomitant]
     Route: 065
  10. VISCOTEARS [Concomitant]
     Route: 065
     Dates: start: 20120618
  11. TOBREX [Concomitant]
     Route: 065
     Dates: start: 20120618, end: 20120622
  12. RAMIPRIL [Concomitant]

REACTIONS (2)
  - Acute myocardial infarction [Not Recovered/Not Resolved]
  - Coronary artery thrombosis [None]
